FAERS Safety Report 23896538 (Version 1)
Quarter: 2024Q2

REPORT INFORMATION
  Report Type: Spontaneous
  Country: US (occurrence: US)
  Receive Date: 20240524
  Receipt Date: 20240524
  Transmission Date: 20240716
  Serious: Yes (Hospitalization)
  Sender: FDA-Public Use
  Company Number: US-ELI_LILLY_AND_COMPANY-US202405013667

PATIENT
  Age: 60 Year
  Sex: Female

DRUGS (2)
  1. VERZENIO [Suspect]
     Active Substance: ABEMACICLIB
     Indication: Breast cancer
     Dosage: UNK UNK, UNKNOWN
     Route: 065
  2. AROMASIN [Concomitant]
     Active Substance: EXEMESTANE
     Indication: Breast cancer

REACTIONS (1)
  - Interstitial lung disease [Not Recovered/Not Resolved]
